FAERS Safety Report 5562642-X (Version None)
Quarter: 2007Q4

REPORT INFORMATION
  Report Type: 
  Country: None (occurrence: None)
  Receive Date: 20071217
  Receipt Date: 20071211
  Transmission Date: 20080405
  Serious: Yes (Hospitalization)
  Sender: FDA-Public Use
  Company Number: BR-BRISTOL-MYERS SQUIBB COMPANY-14009492

PATIENT
  Age: 51 Year
  Sex: Male
  Weight: 87 kg

DRUGS (5)
  1. PRAVACHOL [Suspect]
     Route: 048
  2. SUSTRATE [Suspect]
     Route: 060
     Dates: start: 20070101
  3. CAPTOPRIL [Concomitant]
  4. AAS [Concomitant]
  5. METFORMIN HCL [Concomitant]

REACTIONS (1)
  - ANGINA PECTORIS [None]
